FAERS Safety Report 13565637 (Version 1)
Quarter: 2017Q2

REPORT INFORMATION
  Report Type: Spontaneous
  Country: US (occurrence: US)
  Receive Date: 20170519
  Receipt Date: 20170519
  Transmission Date: 20170830
  Serious: No
  Sender: FDA-Public Use
  Company Number: US-BION-20160279

PATIENT
  Age: 52 Year
  Sex: Female
  Weight: 49.9 kg

DRUGS (1)
  1. IBUPROFEN CAPSULES [Suspect]
     Active Substance: IBUPROFEN
     Indication: HEADACHE
     Dosage: 3 DSF QID AS NEEDED
     Route: 048

REACTIONS (4)
  - Abdominal discomfort [Recovered/Resolved]
  - Oral discomfort [Unknown]
  - Product physical issue [Unknown]
  - Nausea [Recovered/Resolved]

NARRATIVE: CASE EVENT DATE: 20160625
